FAERS Safety Report 8997251 (Version 1)
Quarter: 2013Q1

REPORT INFORMATION
  Report Type: Spontaneous
  Country: US (occurrence: US)
  Receive Date: 20130104
  Receipt Date: 20130104
  Transmission Date: 20140127
  Serious: No
  Sender: FDA-Public Use
  Company Number: US-009507513-1301USA000568

PATIENT
  Age: 69 Year
  Sex: Male

DRUGS (1)
  1. TIMOPTIC [Suspect]
     Indication: GLAUCOMA
     Dosage: 1 GTT, ONCE
     Route: 047
     Dates: start: 20121204, end: 20121204

REACTIONS (4)
  - Foreign body sensation in eyes [Unknown]
  - Vision blurred [Recovered/Resolved]
  - Eye irritation [Unknown]
  - Diplopia [Unknown]
